FAERS Safety Report 7941160-5 (Version None)
Quarter: 2011Q4

REPORT INFORMATION
  Report Type: 
  Country: None (occurrence: None)
  Receive Date: 20111128
  Receipt Date: 20111121
  Transmission Date: 20120403
  Serious: Yes (Life-Threatening, Hospitalization, Disabling)
  Sender: FDA-Public Use
  Company Number: NL-JNJFOC-20111008448

PATIENT
  Sex: Female
  Weight: 53 kg

DRUGS (14)
  1. FRAXIPARINE [Concomitant]
     Route: 065
  2. PALIPERIDONE [Suspect]
     Dosage: DAY 8
     Route: 065
  3. SCOPODERM [Concomitant]
     Route: 065
  4. MOTILIUM [Concomitant]
     Dosage: 3 DD 10
     Route: 065
  5. NEXIUM [Concomitant]
     Route: 065
  6. ACETAMINOPHEN [Concomitant]
     Route: 065
  7. OXAZEPAM [Concomitant]
     Route: 065
  8. PALIPERIDONE [Suspect]
     Dosage: MAINTAINANCE DOSE
     Route: 065
     Dates: end: 20111019
  9. ALL OTHER THERAPEUTIC PRODUCT [Suspect]
     Indication: PRODUCT USED FOR UNKNOWN INDICATION
     Route: 065
  10. UNKNOWN MEDICATION [Concomitant]
     Route: 065
  11. PALIPERIDONE [Suspect]
     Indication: PRODUCT USED FOR UNKNOWN INDICATION
     Dosage: DAY 1
     Route: 065
  12. LACTULOSE [Concomitant]
     Route: 065
  13. RISPERIDONE [Concomitant]
     Route: 065
  14. LANTUS [Concomitant]
     Route: 065

REACTIONS (4)
  - MULTIPLE DRUG OVERDOSE [None]
  - COMA [None]
  - LOCKED-IN SYNDROME [None]
  - CEREBRAL INFARCTION [None]
